FAERS Safety Report 5911045-4 (Version None)
Quarter: 2008Q4

REPORT INFORMATION
  Report Type: 
  Country: None (occurrence: None)
  Receive Date: 20081007
  Receipt Date: 20081003
  Transmission Date: 20090506
  Serious: No
  Sender: FDA-Public Use
  Company Number: DE-RB-003898-08

PATIENT
  Age: 36 Year
  Sex: Male

DRUGS (4)
  1. SUBOXONE [Suspect]
     Route: 060
     Dates: start: 20080722, end: 20080819
  2. ENALAPRIL MALEATE [Concomitant]
     Indication: HYPERTENSION
     Dosage: 1 TABLET DAILY
  3. CARMEN [Concomitant]
     Indication: HYPERTENSION
     Route: 048
  4. SUBUTEX [Concomitant]
     Dosage: UNKNOWN DOSE OR FREQUENCY.
     Route: 065
     Dates: start: 20080718

REACTIONS (1)
  - RASH PUSTULAR [None]
